FAERS Safety Report 19406212 (Version 1)
Quarter: 2021Q2

REPORT INFORMATION
  Report Type: Spontaneous
  Country: CZ (occurrence: CZ)
  Receive Date: 20210611
  Receipt Date: 20210611
  Transmission Date: 20210717
  Serious: Yes (Other)
  Sender: FDA-Public Use
  Company Number: CZ-TEVA-2021-CZ-1920311

PATIENT
  Age: 63 Year
  Sex: Female
  Weight: 90 kg

DRUGS (4)
  1. CARZAP [Concomitant]
     Dosage: 16 MILLIGRAM DAILY; ONE IN THE MORNING
  2. METFORMIN [Suspect]
     Active Substance: METFORMIN HYDROCHLORIDE
     Indication: DIABETES MELLITUS
     Dosage: 1000 MILLIGRAM DAILY; ONE IN THE MORNING, ONE IN THE EVENING
  3. CALTRATE [Concomitant]
     Active Substance: CALCIUM CARBONATE
     Dosage: 600 MG/400 IU
  4. ROSUCARD [Concomitant]
     Active Substance: ROSUVASTATIN CALCIUM
     Dosage: 20 MILLIGRAM DAILY; ONE IN THE EVENING

REACTIONS (7)
  - Abdominal distension [Unknown]
  - Dyspepsia [Unknown]
  - Weight increased [Unknown]
  - Back pain [Unknown]
  - Abdominal pain [Unknown]
  - Pain [Unknown]
  - Diarrhoea [Unknown]
